FAERS Safety Report 9549031 (Version 3)
Quarter: 2013Q3

REPORT INFORMATION
  Report Type: Spontaneous
  Country: US (occurrence: US)
  Receive Date: 20130924
  Receipt Date: 20130930
  Transmission Date: 20140515
  Serious: Yes (Hospitalization, Other)
  Sender: FDA-Public Use
  Company Number: US-PFIZER INC-2013130037

PATIENT
  Age: 47 Year
  Sex: Male
  Weight: 77 kg

DRUGS (2)
  1. DILANTIN [Suspect]
     Indication: CONVULSION
     Dosage: 300 MG, 1X/DAY (AT BED TIME)
     Route: 048
     Dates: start: 20050224, end: 20050403
  2. DILANTIN KAPSEAL [Suspect]
     Indication: CONVULSION
     Dosage: 300 MG, 1X/DAY (AT BED TIME)
     Route: 048
     Dates: start: 20050225, end: 20050225

REACTIONS (2)
  - Stevens-Johnson syndrome [Recovered/Resolved]
  - Toxic epidermal necrolysis [Recovered/Resolved]
